FAERS Safety Report 9110029 (Version 1)
Quarter: 2013Q1

REPORT INFORMATION
  Report Type: Spontaneous
  Country: US (occurrence: US)
  Receive Date: 20130222
  Receipt Date: 20130222
  Transmission Date: 20140127
  Serious: Yes (Hospitalization, Other)
  Sender: FDA-Public Use
  Company Number: US-BRISTOL-MYERS SQUIBB COMPANY-17384223

PATIENT
  Sex: 0

DRUGS (1)
  1. YERVOY [Suspect]
     Dosage: DOSES: 4?RECENT DOSE NOV2012

REACTIONS (4)
  - Bone marrow failure [Unknown]
  - Hepatitis [Unknown]
  - Diabetes mellitus inadequate control [Unknown]
  - Metastases to central nervous system [Unknown]
